FAERS Safety Report 25982445 (Version 2)
Quarter: 2025Q4

REPORT INFORMATION
  Report Type: Spontaneous
  Country: US (occurrence: US)
  Receive Date: 20251031
  Receipt Date: 20251114
  Transmission Date: 20260117
  Serious: No
  Sender: LEO PHARM
  Company Number: US-LEO Pharma-383812

PATIENT
  Age: 51 Year
  Sex: Female

DRUGS (2)
  1. ADBRY [Suspect]
     Active Substance: TRALOKINUMAB-LDRM
     Indication: Eczema
     Dosage: TREATMENT ONGOING??600MG (2-300MG PENS) SUBCUTANEOUS ON DAY 1 (10/2/2025), 300MG PEN SUBCUTANEOUS?EV
     Route: 058
     Dates: start: 20251002
  2. ADBRY [Suspect]
     Active Substance: TRALOKINUMAB-LDRM
     Indication: Eczema
     Dosage: TREATMENT ONGOING??600MG (2-300MG PENS) SUBCUTANEOUS ON DAY 1 (10/2/2025), 300MG PEN SUBCUTANEOUS?EV
     Route: 058
     Dates: start: 20251016

REACTIONS (13)
  - Swelling [Unknown]
  - Burning sensation [Unknown]
  - Photophobia [Unknown]
  - Pain [Unknown]
  - Ocular discomfort [Unknown]
  - Secretion discharge [Unknown]
  - Pruritus [Unknown]
  - Erythema [Not Recovered/Not Resolved]
  - Urticaria [Unknown]
  - Blister [Unknown]
  - Dysphagia [Unknown]
  - Oropharyngeal pain [Unknown]
  - Skin tightness [Not Recovered/Not Resolved]
